FAERS Safety Report 6818701-4 (Version None)
Quarter: 2010Q2

REPORT INFORMATION
  Report Type: 
  Country: None (occurrence: None)
  Receive Date: 20100630
  Receipt Date: 20100617
  Transmission Date: 20101027
  Serious: Yes (Disabling)
  Sender: FDA-Public Use
  Company Number: 2010PV000019

PATIENT
  Age: 69 Year
  Sex: Male

DRUGS (2)
  1. DEPOCYT [Suspect]
     Indication: METASTASES TO MENINGES
     Dosage: 50 MG; 1X; INTH
     Route: 055
     Dates: start: 20100101, end: 20100401
  2. CORTICOSTEROID (NO PREF. NAME) [Suspect]
     Dates: start: 20100101

REACTIONS (7)
  - CAUDA EQUINA SYNDROME [None]
  - GAIT DISTURBANCE [None]
  - HAEMORRHAGE [None]
  - MYELOPATHY [None]
  - PERIPHERAL MOTOR NEUROPATHY [None]
  - SENSORY DISTURBANCE [None]
  - SPINAL DISORDER [None]
